FAERS Safety Report 17484549 (Version 3)
Quarter: 2020Q1

REPORT INFORMATION
  Report Type: Spontaneous
  Country: US (occurrence: US)
  Receive Date: 20200302
  Receipt Date: 20200317
  Transmission Date: 20200409
  Serious: Yes (Other)
  Sender: FDA-Public Use
  Company Number: US-PFIZER INC-2020080475

PATIENT
  Age: 38 Year
  Sex: Male
  Weight: 74.83 kg

DRUGS (1)
  1. PREPARATION H NOS [Suspect]
     Active Substance: COCOA BUTTER\PETROLATUM\PHENYLEPHRINE HYDROCHLORIDE\PHENYLEPHRINE HYDROCHLORIDE OR MINERAL OIL
     Indication: HAEMORRHOIDS
     Dosage: UNK (ENOUGH TO LIGHTLY COVER AFFECTED AREA 1-2 TIMES A DAY)
     Dates: start: 20200220, end: 20200226

REACTIONS (2)
  - Drug ineffective [Unknown]
  - Haemorrhage [Unknown]

NARRATIVE: CASE EVENT DATE: 202002
